FAERS Safety Report 17483825 (Version 2)
Quarter: 2020Q1

REPORT INFORMATION
  Report Type: Report from Study
  Country: US (occurrence: US)
  Receive Date: 20200302
  Receipt Date: 20200324
  Transmission Date: 20200409
  Serious: Yes (Death, Hospitalization)
  Sender: FDA-Public Use
  Company Number: US-ACTELION-A-NJ2020-202481

PATIENT
  Age: 2 Year
  Sex: Male

DRUGS (7)
  1. ZAVESCA [Suspect]
     Active Substance: MIGLUSTAT
     Indication: PRODUCT USED FOR UNKNOWN INDICATION
     Dosage: 100 MG, TID
     Route: 048
     Dates: start: 20191220
  2. VITAMIN D3 [Concomitant]
     Active Substance: CHOLECALCIFEROL
     Dosage: 1 ML, QD
     Route: 048
     Dates: start: 20191219, end: 20200225
  3. PANTOPRAZOLE [Concomitant]
     Active Substance: PANTOPRAZOLE
     Dosage: 2 ML, BID
     Route: 048
     Dates: start: 20191219, end: 20200225
  4. POTASSIUM [Concomitant]
     Active Substance: POTASSIUM
     Dosage: 3 ML, QD
     Route: 048
     Dates: start: 20191219, end: 20200225
  5. KEPPRA [Concomitant]
     Active Substance: LEVETIRACETAM
     Dosage: 1 ML, BID
     Route: 048
     Dates: start: 20191219, end: 20200225
  6. PHOSPHATE LAXATIVE [Concomitant]
     Dosage: 1 TAB, QD
     Route: 048
     Dates: start: 20191219, end: 20200225
  7. CAPTOPRIL. [Concomitant]
     Active Substance: CAPTOPRIL
     Dosage: 2 ML, TID
     Route: 048
     Dates: start: 20191219, end: 20200225

REACTIONS (2)
  - Death [Fatal]
  - Viral infection [Unknown]

NARRATIVE: CASE EVENT DATE: 20200225
